FAERS Safety Report 5804313-8 (Version None)
Quarter: 2008Q3

REPORT INFORMATION
  Report Type: 
  Country: None (occurrence: None)
  Receive Date: 20080709
  Receipt Date: 20080625
  Transmission Date: 20090109
  Serious: Yes (Other)
  Sender: FDA-Public Use
  Company Number: PHEH2006US10949

PATIENT
  Sex: Female
  Weight: 52.154 kg

DRUGS (14)
  1. ESTRADERM [Suspect]
     Indication: MENOPAUSAL SYMPTOMS
     Dosage: 0.25-0.5 MG TWICE WEEKLY
     Route: 062
  2. ESTRACE [Suspect]
     Indication: MENOPAUSAL SYMPTOMS
  3. PROVERA [Suspect]
     Indication: MENOPAUSAL SYMPTOMS
     Dosage: 5-10MG
  4. PREMARIN [Suspect]
     Indication: MENOPAUSAL SYMPTOMS
     Dosage: 1.25 MG, UNK
     Dates: start: 19870101
  5. ESTRATEST [Suspect]
  6. ESTINYL [Suspect]
     Dosage: 1.25 MG, UNK
  7. PROGESTERONE [Suspect]
  8. PROVENTIL [Concomitant]
  9. BECLOVENT [Concomitant]
  10. VANCENASE [Concomitant]
  11. VERAPAMIL [Concomitant]
  12. FLECAINIDE ACETATE [Concomitant]
  13. AZMACORT [Concomitant]
  14. CALCIUM [Concomitant]

REACTIONS (14)
  - ARTHRALGIA [None]
  - BIOPSY BREAST [None]
  - BREAST CANCER IN SITU [None]
  - EPISTAXIS [None]
  - LYMPHOEDEMA [None]
  - MASSAGE [None]
  - MASTECTOMY [None]
  - NASAL POLYPS [None]
  - OESTROGEN RECEPTOR ASSAY POSITIVE [None]
  - OSTEOPOROSIS [None]
  - PROGESTERONE RECEPTOR ASSAY POSITIVE [None]
  - PYELOPLASTY [None]
  - SEBORRHOEIC KERATOSIS [None]
  - URETERIC OBSTRUCTION [None]
